FAERS Safety Report 11642864 (Version 1)
Quarter: 2015Q4

REPORT INFORMATION
  Report Type: Spontaneous
  Country: US (occurrence: US)
  Receive Date: 20151020
  Receipt Date: 20151020
  Transmission Date: 20160304
  Serious: Yes (Other)
  Sender: FDA-Public Use
  Company Number: US-PFIZER INC-2015334435

PATIENT
  Sex: Female
  Weight: 70 kg

DRUGS (4)
  1. ADVIL [Suspect]
     Active Substance: IBUPROFEN
     Indication: PAIN IN EXTREMITY
     Dosage: 1 OR 2 LIQUID GELS IN THE MORNING
  2. ADVIL PM [Interacting]
     Active Substance: DIPHENHYDRAMINE CITRATE\IBUPROFEN
     Indication: INSOMNIA
  3. ADVIL COLD AND SINUS [Interacting]
     Active Substance: IBUPROFEN\PSEUDOEPHEDRINE HYDROCHLORIDE
     Indication: SINUS DISORDER
     Dosage: UNK, AS NEEDED
  4. ADVIL PM [Interacting]
     Active Substance: DIPHENHYDRAMINE CITRATE\IBUPROFEN
     Indication: PAIN IN EXTREMITY
     Dosage: 200 MG, AS NEEDED
     Dates: start: 201509, end: 2015

REACTIONS (10)
  - Sinus disorder [Unknown]
  - Disturbance in attention [Recovered/Resolved]
  - Poor quality sleep [Unknown]
  - Intentional product misuse [Unknown]
  - Confusional state [Unknown]
  - Drug interaction [Unknown]
  - Product formulation issue [Unknown]
  - Depressed level of consciousness [Unknown]
  - Memory impairment [Recovered/Resolved]
  - Somnolence [Unknown]

NARRATIVE: CASE EVENT DATE: 2015
